FAERS Safety Report 25414389 (Version 1)
Quarter: 2025Q2

REPORT INFORMATION
  Report Type: Spontaneous
  Country: AT (occurrence: AT)
  Receive Date: 20250609
  Receipt Date: 20250609
  Transmission Date: 20250716
  Serious: Yes (Hospitalization, Other)
  Sender: MYLAN
  Company Number: DE-MMM-Otsuka-ZV4K86G3

PATIENT
  Age: 25 Year
  Sex: Female
  Weight: 89 kg

DRUGS (8)
  1. ARIPIPRAZOLE [Suspect]
     Active Substance: ARIPIPRAZOLE
     Indication: Somatic symptom disorder
  2. ARIPIPRAZOLE [Suspect]
     Active Substance: ARIPIPRAZOLE
     Dosage: 5 MILLIGRAM, QD
     Dates: start: 20250124
  3. DULOXETINE [Suspect]
     Active Substance: DULOXETINE
     Indication: Somatic symptom disorder
  4. DULOXETINE [Suspect]
     Active Substance: DULOXETINE
     Dosage: 120 MILLIGRAM, QD
     Dates: start: 20250124
  5. GABAPENTIN [Suspect]
     Active Substance: GABAPENTIN
     Indication: Somatic symptom disorder
     Dates: start: 20250124, end: 20250304
  6. GABAPENTIN [Suspect]
     Active Substance: GABAPENTIN
     Dates: start: 20250305, end: 20250306
  7. GABAPENTIN [Suspect]
     Active Substance: GABAPENTIN
     Dates: start: 20250307, end: 20250310
  8. ESKETAMINE [Concomitant]
     Active Substance: ESKETAMINE
     Indication: Product used for unknown indication

REACTIONS (2)
  - Weight increased [Unknown]
  - Product use in unapproved indication [Unknown]

NARRATIVE: CASE EVENT DATE: 20241001
